FAERS Safety Report 25076011 (Version 1)
Quarter: 2025Q1

REPORT INFORMATION
  Report Type: Spontaneous
  Country: CN (occurrence: CN)
  Receive Date: 20250313
  Receipt Date: 20250313
  Transmission Date: 20250409
  Serious: Yes (Other)
  Sender: BEIGENE
  Company Number: CN-BEIGENE-BGN-2025-003873

PATIENT
  Age: 53 Year
  Weight: 55 kg

DRUGS (2)
  1. BRUKINSA [Suspect]
     Active Substance: ZANUBRUTINIB
     Indication: Central nervous system lymphoma
     Dosage: 2 DOSAGE FORM (CAPSULES), BID
  2. METHOTREXATE [Suspect]
     Active Substance: METHOTREXATE
     Indication: Central nervous system lymphoma
     Dosage: 4.5 GRAM, QD

REACTIONS (2)
  - Myelosuppression [Unknown]
  - Off label use [Unknown]
